FAERS Safety Report 7135676-1 (Version None)
Quarter: 2010Q4

REPORT INFORMATION
  Report Type: 
  Country: None (occurrence: None)
  Receive Date: 20101203
  Receipt Date: 20101124
  Transmission Date: 20110411
  Serious: Yes (Death, Hospitalization, Other)
  Sender: FDA-Public Use
  Company Number: US-ROCHE-745712

PATIENT
  Age: 58 Year
  Sex: Female

DRUGS (16)
  1. BEVACIZUMAB [Suspect]
     Dosage: RECEIVED 5 TH CYCLE ON 28 APRIL 2009.
     Route: 042
     Dates: start: 20090202
  2. TOPOTECAN [Suspect]
     Dosage: FREQUENCY: DAYS 1-5. LAST DOSE PRIOR TO SAE: 02 MAY 2009.
     Route: 048
     Dates: start: 20090202
  3. GLYBURIDE [Concomitant]
  4. CLONIDINE [Concomitant]
  5. PANTOPRAZOLE [Concomitant]
  6. LOPERAMIDE [Concomitant]
  7. PROMETHAZINE [Concomitant]
  8. TEMAZEPAM [Concomitant]
  9. MEGESTROL ACETATE [Concomitant]
  10. MAGNESIUM OXIDE [Concomitant]
  11. PREGABALIN [Concomitant]
  12. METOCLOPRAMID-HCL [Concomitant]
     Dosage: DRUG NAME REPORTED AS: METOCLOPRAMID-HYDROCHLORIDE.
  13. POTASSIUM CHLORIDE [Concomitant]
  14. DEXAMETHASONE [Concomitant]
  15. ONDANSETRON [Concomitant]
  16. CEFTRIAXONE [Concomitant]

REACTIONS (14)
  - ASTHENIA [None]
  - CHILLS [None]
  - COGNITIVE DISORDER [None]
  - CONFUSIONAL STATE [None]
  - DEATH [None]
  - DYSPNOEA [None]
  - FAECAL INCONTINENCE [None]
  - HYPERREFLEXIA [None]
  - OEDEMA PERIPHERAL [None]
  - ORAL PAIN [None]
  - PAIN IN EXTREMITY [None]
  - TREATMENT NONCOMPLIANCE [None]
  - URINARY INCONTINENCE [None]
  - URINARY TRACT INFECTION [None]
